FAERS Safety Report 5152028-4 (Version None)
Quarter: 2006Q4

REPORT INFORMATION
  Report Type: 
  Country: None (occurrence: None)
  Receive Date: 20061116
  Receipt Date: 20061023
  Transmission Date: 20070319
  Serious: Yes (Other)
  Sender: FDA-Public Use
  Company Number: PHBS2006BR16670

PATIENT
  Age: 61 Year
  Sex: Female

DRUGS (3)
  1. DIOCOMB SI [Suspect]
     Indication: HYPERTENSION
     Dosage: VALS 160 / SIMV 20 MG/DAY
     Route: 048
     Dates: start: 20061008
  2. DIAMICRON [Concomitant]
     Indication: DIABETES MELLITUS
  3. ACTOS [Concomitant]
     Indication: DIABETES MELLITUS

REACTIONS (5)
  - BLOOD PRESSURE INCREASED [None]
  - CHEST PAIN [None]
  - DRUG INEFFECTIVE [None]
  - MALAISE [None]
  - PAIN [None]
